FAERS Safety Report 6541871-2 (Version None)
Quarter: 2010Q1

REPORT INFORMATION
  Report Type: 
  Country: None (occurrence: None)
  Receive Date: 20100119
  Receipt Date: 20100111
  Transmission Date: 20100710
  Serious: Yes (Hospitalization)
  Sender: FDA-Public Use
  Company Number: US-RB-000648-10

PATIENT
  Age: 35 Year
  Sex: Female

DRUGS (2)
  1. SUBOXONE [Suspect]
     Indication: PAIN
     Route: 060
     Dates: start: 20080901, end: 20100105
  2. SUBOXONE [Suspect]
     Route: 060
     Dates: start: 20100106

REACTIONS (1)
  - PNEUMONIA [None]
